FAERS Safety Report 15499612 (Version 1)
Quarter: 2018Q4

REPORT INFORMATION
  Report Type: Report from Study
  Country: BR (occurrence: BR)
  Receive Date: 20181015
  Receipt Date: 20181015
  Transmission Date: 20190205
  Serious: Yes (Other)
  Sender: FDA-Public Use
  Company Number: PHHY2018BR052671

PATIENT
  Sex: Female
  Weight: 75 kg

DRUGS (3)
  1. DIOVAN HCT [Suspect]
     Active Substance: HYDROCHLOROTHIAZIDE\VALSARTAN
     Indication: PRODUCT USED FOR UNKNOWN INDICATION
     Dosage: (HYDROCHLOROTHIAZIDE 12.5MG, VALSARTAN 80 MG)
     Route: 065
  2. GALVUS MET [Suspect]
     Active Substance: METFORMIN HYDROCHLORIDE\VILDAGLIPTIN
     Dosage: (METFORMIN 850 MG, VILDAGLIPTIN 50 MG)
     Route: 065
  3. GALVUS MET [Suspect]
     Active Substance: METFORMIN HYDROCHLORIDE\VILDAGLIPTIN
     Indication: PRODUCT USED FOR UNKNOWN INDICATION
     Dosage: (METFORMIN 1000 MG, VILDAGLIPTIN 50 MG)
     Route: 065

REACTIONS (6)
  - Hepatic steatosis [Unknown]
  - Liver injury [Unknown]
  - Blood pressure decreased [Unknown]
  - Drug intolerance [Unknown]
  - Blood glucose increased [Unknown]
  - Abdominal discomfort [Unknown]
